FAERS Safety Report 15710220 (Version 1)
Quarter: 2018Q4

REPORT INFORMATION
  Report Type: Spontaneous
  Country: US (occurrence: US)
  Receive Date: 20181211
  Receipt Date: 20181211
  Transmission Date: 20190205
  Serious: Yes (Other)
  Sender: FDA-Public Use
  Company Number: US-SHIRE-US201847493

PATIENT
  Age: 57 Year
  Sex: Female
  Weight: 45.81 kg

DRUGS (1)
  1. CUVITRU [Suspect]
     Active Substance: HUMAN IMMUNOGLOBULIN G
     Indication: IMMUNODEFICIENCY
     Dosage: 24 G, 1X/2WKS
     Route: 058
     Dates: start: 20170124

REACTIONS (1)
  - Facial paralysis [Unknown]

NARRATIVE: CASE EVENT DATE: 20181128
